FAERS Safety Report 18500778 (Version 1)
Quarter: 2020Q4

REPORT INFORMATION
  Report Type: Spontaneous
  Country: US (occurrence: US)
  Receive Date: 20201113
  Receipt Date: 20201113
  Transmission Date: 20210114
  Serious: Yes (Disabling, Other)
  Sender: FDA-Public Use
  Company Number: US-PFIZER INC-2020446681

PATIENT
  Age: 57 Year
  Sex: Male
  Weight: 193 kg

DRUGS (3)
  1. INLYTA [Suspect]
     Active Substance: AXITINIB
     Indication: RENAL CELL CARCINOMA
     Dosage: 5 MG, TWICE A DAY
     Route: 048
     Dates: start: 20200729, end: 20200930
  2. KEYTRUDA [Concomitant]
     Active Substance: PEMBROLIZUMAB
     Indication: RENAL CELL CARCINOMA
     Dosage: 200 MG (EVERY 3 WEEKS)
     Route: 042
     Dates: start: 20200729, end: 20200930
  3. WARFARIN [Concomitant]
     Active Substance: WARFARIN
     Indication: ANTICOAGULANT THERAPY
     Dosage: UNK
     Dates: start: 2008

REACTIONS (4)
  - Wound [Recovering/Resolving]
  - Transaminases increased [Unknown]
  - Liver function test increased [Unknown]
  - Gangrene [Recovering/Resolving]

NARRATIVE: CASE EVENT DATE: 2020
